FAERS Safety Report 6035443-6 (Version None)
Quarter: 2009Q1

REPORT INFORMATION
  Report Type: 
  Country: None (occurrence: None)
  Receive Date: 20090113
  Receipt Date: 20090108
  Transmission Date: 20090719
  Serious: Yes (Death, Hospitalization)
  Sender: FDA-Public Use
  Company Number: CA-BRISTOL-MYERS SQUIBB COMPANY-14454425

PATIENT
  Age: 75 Year
  Sex: Male
  Weight: 54 kg

DRUGS (3)
  1. ERBITUX [Suspect]
     Indication: PHARYNGEAL CANCER STAGE UNSPECIFIED
     Dosage: INITIALLY ON 12NOV08
     Dates: start: 20081215
  2. CISPLATIN [Suspect]
     Indication: PHARYNGEAL CANCER STAGE UNSPECIFIED
     Dosage: INITIALLY ON 12NOV08
     Dates: start: 20081215
  3. RADIATION THERAPY [Suspect]
     Indication: PHARYNGEAL CANCER STAGE UNSPECIFIED
     Dosage: 1DF-30GY .NO OF FRACTION -15,ELASPSED DAYS-29
     Dates: start: 20081212

REACTIONS (4)
  - BLOOD CREATININE INCREASED [None]
  - INFECTION [None]
  - PLATELET COUNT DECREASED [None]
  - WHITE BLOOD CELL COUNT DECREASED [None]
